FAERS Safety Report 16124404 (Version 3)
Quarter: 2019Q4

REPORT INFORMATION
  Report Type: Spontaneous
  Country: US (occurrence: US)
  Receive Date: 20190327
  Receipt Date: 20191119
  Transmission Date: 20200122
  Serious: No
  Sender: FDA-Public Use
  Company Number: US-SA-2019SA083759

PATIENT
  Age: 60 Year
  Sex: Female

DRUGS (7)
  1. TYLENOL [Concomitant]
     Active Substance: ACETAMINOPHEN
  2. ASPIRIN EC [Concomitant]
     Active Substance: ASPIRIN
  3. DUPIXENT [Suspect]
     Active Substance: DUPILUMAB
     Indication: IRON DEFICIENCY ANAEMIA
     Dosage: 300 MG, QOW
     Route: 058
     Dates: start: 20190301
  4. INJECTAFER [Concomitant]
     Active Substance: FERRIC CARBOXYMALTOSE
  5. DUPIXENT [Suspect]
     Active Substance: DUPILUMAB
     Indication: ASTHMA
  6. VENTOLIN [Concomitant]
     Active Substance: ALBUTEROL SULFATE
  7. VITAMIN D3 [Concomitant]
     Active Substance: CHOLECALCIFEROL

REACTIONS (5)
  - Injection site pain [Recovered/Resolved]
  - Product use in unapproved indication [Unknown]
  - Somnolence [Not Recovered/Not Resolved]
  - Limb operation [Unknown]
  - Drug ineffective [Unknown]

NARRATIVE: CASE EVENT DATE: 2019
